FAERS Safety Report 19816769 (Version 1)
Quarter: 2021Q3

REPORT INFORMATION
  Report Type: Spontaneous
  Country: US (occurrence: US)
  Receive Date: 20210910
  Receipt Date: 20210910
  Transmission Date: 20211014
  Serious: No
  Sender: FDA-Public Use
  Company Number: US-SA-2021SA296644

PATIENT
  Age: 50 Year
  Sex: Female

DRUGS (12)
  1. LASIX [Concomitant]
     Active Substance: FUROSEMIDE
  2. BOTOX [Concomitant]
     Active Substance: ONABOTULINUMTOXINA
  3. LATISSE [Concomitant]
     Active Substance: BIMATOPROST
  4. CLOBETASOL [Concomitant]
     Active Substance: CLOBETASOL
  5. ENTRESTO [Concomitant]
     Active Substance: SACUBITRIL\VALSARTAN
  6. SPIRONOLACTONE. [Concomitant]
     Active Substance: SPIRONOLACTONE
  7. COREG [Concomitant]
     Active Substance: CARVEDILOL
  8. SPIRONOLACTON [Concomitant]
     Active Substance: SPIRONOLACTONE
  9. IMURAN [Concomitant]
     Active Substance: AZATHIOPRINE
  10. POTASSIUM [Concomitant]
     Active Substance: POTASSIUM
  11. LASIX [Concomitant]
     Active Substance: FUROSEMIDE
  12. DUPIXENT [Suspect]
     Active Substance: DUPILUMAB
     Indication: DERMATITIS ATOPIC
     Dosage: 300 MG, QOW
     Route: 058
     Dates: start: 20191016

REACTIONS (2)
  - Eczema [Unknown]
  - Product dose omission issue [Unknown]

NARRATIVE: CASE EVENT DATE: 20210902
